FAERS Safety Report 11096696 (Version 1)
Quarter: 2015Q2

REPORT INFORMATION
  Report Type: Spontaneous
  Country: DE (occurrence: DE)
  Receive Date: 20150507
  Receipt Date: 20150507
  Transmission Date: 20150821
  Serious: Yes (Hospitalization)
  Sender: FDA-Public Use
  Company Number: DE-SA-2015SA059279

PATIENT
  Sex: Female

DRUGS (1)
  1. LEMTRADA [Suspect]
     Active Substance: ALEMTUZUMAB
     Indication: MULTIPLE SCLEROSIS
     Route: 041
     Dates: start: 201409

REACTIONS (2)
  - Varicella zoster virus infection [Recovering/Resolving]
  - Renal failure [Recovering/Resolving]

NARRATIVE: CASE EVENT DATE: 2015
